FAERS Safety Report 6133934-0 (Version None)
Quarter: 2009Q1

REPORT INFORMATION
  Report Type: 
  Country: None (occurrence: None)
  Receive Date: 20090326
  Receipt Date: 20090316
  Transmission Date: 20090719
  Serious: Yes (Other)
  Sender: FDA-Public Use
  Company Number: PT-ABBOTT-09P-130-0558380-00

PATIENT
  Age: 70 Year
  Sex: Male

DRUGS (9)
  1. HUMIRA [Suspect]
     Indication: ANKYLOSING SPONDYLITIS
     Route: 058
  2. ISONIAZID [Suspect]
     Indication: PULMONARY TUBERCULOSIS
  3. ISONIAZID [Suspect]
     Indication: EXTRAPULMONARY TUBERCULOSIS
  4. ETAMBUTOL [Suspect]
     Indication: PULMONARY TUBERCULOSIS
  5. ETAMBUTOL [Suspect]
     Indication: EXTRAPULMONARY TUBERCULOSIS
  6. PYRAZINAMIDE [Suspect]
     Indication: PULMONARY TUBERCULOSIS
  7. PYRAZINAMIDE [Suspect]
     Indication: EXTRAPULMONARY TUBERCULOSIS
  8. RIFAMPICIN [Suspect]
     Indication: PULMONARY TUBERCULOSIS
  9. RIFAMPICIN [Suspect]
     Indication: EXTRAPULMONARY TUBERCULOSIS

REACTIONS (4)
  - EXTRAPULMONARY TUBERCULOSIS [None]
  - HEPATOTOXICITY [None]
  - PULMONARY TUBERCULOSIS [None]
  - WEIGHT DECREASED [None]
